FAERS Safety Report 4464831-4 (Version None)
Quarter: 2004Q4

REPORT INFORMATION
  Report Type: 
  Country: None (occurrence: None)
  Receive Date: 20041004
  Receipt Date: 20031021
  Transmission Date: 20050328
  Serious: No
  Sender: FDA-Public Use
  Company Number: 352039

PATIENT
  Sex: Male

DRUGS (7)
  1. COREG [Suspect]
     Indication: HYPERTENSION
     Dosage: 3.125MG TWICE PER DAY
     Route: 048
  2. ACCUPRIL [Concomitant]
  3. PROZAC [Concomitant]
  4. ASPIRIN [Concomitant]
  5. PREVACID [Concomitant]
  6. ATIVAN [Concomitant]
  7. LACTASE [Concomitant]

REACTIONS (5)
  - ARTHRALGIA [None]
  - HEADACHE [None]
  - HYPOAESTHESIA [None]
  - MUSCULAR WEAKNESS [None]
  - PARAESTHESIA [None]
